FAERS Safety Report 16797458 (Version 1)
Quarter: 2019Q3

REPORT INFORMATION
  Report Type: Report from Study
  Country: DE (occurrence: DE)
  Receive Date: 20190912
  Receipt Date: 20190912
  Transmission Date: 20191005
  Serious: Yes (Hospitalization)
  Sender: FDA-Public Use
  Company Number: DE-TEVA-2019-DE-1105549

PATIENT
  Age: 41 Year
  Sex: Female

DRUGS (13)
  1. GABAPENTIN. [Concomitant]
     Active Substance: GABAPENTIN
     Dosage: 300MG
     Route: 065
     Dates: start: 20140304
  2. TRASTUZUMAB. [Suspect]
     Active Substance: TRASTUZUMAB
     Dosage: MAINTENENCE DOSE AS PER PROTOCOL.?DATE OF LAST DOSE PRIOR TO SAE: 30/JUL/2013.?DATE OF LAST DOSE PRI
     Route: 042
  3. GABAPENTIN. [Concomitant]
     Active Substance: GABAPENTIN
     Dosage: 600MG
     Route: 065
     Dates: start: 20131119
  4. PACLITAXEL ALBUMIN [Suspect]
     Active Substance: PACLITAXEL
     Indication: BREAST CANCER
     Dosage: LAST DOSE PRIOR TO SAE: 29/JUL/2013.?DATE OF LAST DOSE PRIOR TO INFECTION OF THE LEFT BREAST IMPLANT
     Route: 042
     Dates: start: 20130729
  5. PERTUZUMAB. [Suspect]
     Active Substance: PERTUZUMAB
     Indication: BREAST CANCER
     Dosage: LOADING DOSE AS PER PROTOCOL.840MG PER TOTAL
     Route: 042
     Dates: start: 20130730, end: 20130730
  6. PERTUZUMAB. [Suspect]
     Active Substance: PERTUZUMAB
     Dosage: MAINTENENCE DOSE AS PER PROTOCOL. ?DATE OF LAST DOSE PRIOR TO SAE: 30/JUL/2013.?DATE OF LAST DOSE PR
     Route: 042
  7. TILIDIN [Concomitant]
     Active Substance: NALOXONE HYDROCHLORIDE\TILIDINE HYDROCHLORIDE
     Dosage: 200MG
     Route: 065
     Dates: start: 20140304
  8. TILIDIN [Concomitant]
     Active Substance: NALOXONE HYDROCHLORIDE\TILIDINE HYDROCHLORIDE
     Dosage: 400MG
     Route: 065
     Dates: start: 20121115, end: 20130906
  9. CLEXANE [Concomitant]
     Active Substance: ENOXAPARIN SODIUM
     Route: 065
     Dates: start: 20130729
  10. AMOXI-CLAVULAN [Concomitant]
     Dosage: TOTAL DAILY DOSE: 1750/250 MG
     Route: 065
     Dates: start: 20130927
  11. TRASTUZUMAB. [Suspect]
     Active Substance: TRASTUZUMAB
     Indication: BREAST CANCER
     Dosage: LOADING DOSE AS PER PROTOCOL.8 MGKG PER TOTAL
     Route: 042
     Dates: start: 20130730, end: 20130730
  12. PREDNISOLONE. [Concomitant]
     Active Substance: PREDNISOLONE
     Route: 065
     Dates: start: 20140411, end: 20140420
  13. GABAPENTIN. [Concomitant]
     Active Substance: GABAPENTIN
     Dosage: 2400MG
     Route: 065
     Dates: start: 20121115, end: 20131117

REACTIONS (1)
  - Device related infection [Recovered/Resolved]

NARRATIVE: CASE EVENT DATE: 20130805
